FAERS Safety Report 11224200 (Version 2)
Quarter: 2015Q3

REPORT INFORMATION
  Report Type: Report from Study
  Country: ZA (occurrence: ZA)
  Receive Date: 20150629
  Receipt Date: 20150706
  Transmission Date: 20151125
  Serious: Yes (Death, Hospitalization)
  Sender: FDA-Public Use
  Company Number: ZA-AMGEN-ZAFSL2015061696

PATIENT
  Age: 35 Year
  Sex: Male
  Weight: 88 kg

DRUGS (2)
  1. ARANESP [Suspect]
     Active Substance: DARBEPOETIN ALFA
     Indication: CHRONIC KIDNEY DISEASE
  2. ARANESP [Suspect]
     Active Substance: DARBEPOETIN ALFA
     Indication: NEPHROGENIC ANAEMIA
     Dosage: 80 MUG, Q2WK
     Route: 058
     Dates: start: 20130807, end: 20141229

REACTIONS (3)
  - Cardiac failure [Fatal]
  - Pneumonia [Fatal]
  - Hypertensive heart disease [Fatal]

NARRATIVE: CASE EVENT DATE: 20140726
